FAERS Safety Report 9769092 (Version 1)
Quarter: 2013Q4

REPORT INFORMATION
  Report Type: Spontaneous
  Country: US (occurrence: None)
  Receive Date: 20131217
  Receipt Date: 20131217
  Transmission Date: 20140711
  Serious: Yes (Life-Threatening, Hospitalization, Disabling)
  Sender: FDA-Public Use
  Company Number: None

PATIENT
  Age: 61 Year
  Sex: Male
  Weight: 81.65 kg

DRUGS (1)
  1. TESTOSTERONE [Suspect]
     Indication: HIV INFECTION
     Dosage: 200MG TWICE A MONTH, INJECTED INTO SPINAL AREA
     Dates: start: 20010101, end: 20131201

REACTIONS (1)
  - Unevaluable event [None]
